FAERS Safety Report 4288750-1 (Version None)
Quarter: 2004Q1

REPORT INFORMATION
  Report Type: 
  Country: None (occurrence: None)
  Receive Date: 20040205
  Receipt Date: 20040122
  Transmission Date: 20041129
  Serious: Yes (Hospitalization)
  Sender: FDA-Public Use
  Company Number: 2004-FF-00051FF(0)

PATIENT
  Age: 97 Year
  Sex: Female

DRUGS (3)
  1. MICARDIS [Suspect]
     Indication: ESSENTIAL HYPERTENSION
     Dosage: PO
     Route: 048
     Dates: start: 20030215, end: 20030917
  2. LEVOTHYROX (LEVOTHYROXINE SODUIM) (NR) [Concomitant]
  3. COZAAR (LOSARTAN POTASSIUM) (NR) [Concomitant]

REACTIONS (3)
  - DERMATITIS BULLOUS [None]
  - PEMPHIGOID [None]
  - TOXIC SKIN ERUPTION [None]
